FAERS Safety Report 5921832-4 (Version None)
Quarter: 2008Q4

REPORT INFORMATION
  Report Type: 
  Country: None (occurrence: None)
  Receive Date: 20081016
  Receipt Date: 20081016
  Transmission Date: 20090506
  Serious: Yes (Hospitalization)
  Sender: FDA-Public Use
  Company Number: None

PATIENT
  Age: 13 Year
  Sex: Female
  Weight: 166.4 kg

DRUGS (2)
  1. ERLOTINIB 330 MG OSI [Suspect]
     Indication: GLIOMA
     Dosage: 145MG/M2 QD PO
     Route: 048
     Dates: start: 20080908, end: 20080930
  2. ERLOTINIB 250MG OSI [Suspect]
     Dosage: 110MG/M2 QD PO
     Route: 048
     Dates: start: 20081010, end: 20081010

REACTIONS (2)
  - DIARRHOEA [None]
  - VOMITING [None]
